FAERS Safety Report 20499068 (Version 1)
Quarter: 2022Q1

REPORT INFORMATION
  Report Type: Spontaneous
  Country: US (occurrence: US)
  Receive Date: 20220222
  Receipt Date: 20220222
  Transmission Date: 20220423
  Serious: No
  Sender: FDA-Public Use
  Company Number: US-SA-SAC20220216000363

PATIENT
  Sex: Male

DRUGS (1)
  1. DUPIXENT [Suspect]
     Active Substance: DUPILUMAB
     Indication: Insomnia
     Dosage: 300MG/2ML
     Route: 058

REACTIONS (3)
  - Sleep disorder [Unknown]
  - Rash [Unknown]
  - Product use in unapproved indication [Unknown]
